FAERS Safety Report 24651100 (Version 1)
Quarter: 2024Q4

REPORT INFORMATION
  Report Type: Report from Study
  Country: US (occurrence: US)
  Receive Date: 20241122
  Receipt Date: 20241122
  Transmission Date: 20250115
  Serious: Yes (Hospitalization, Other)
  Sender: ROCHE
  Company Number: US-ROCHE-10000136491

PATIENT

DRUGS (4)
  1. RITUXIMAB [Suspect]
     Active Substance: RITUXIMAB
     Indication: Central nervous system lymphoma
     Dosage: IV OVER 5 HOURS ON DAY 1
     Route: 042
  2. MANNITOL [Suspect]
     Active Substance: MANNITOL
     Indication: Central nervous system lymphoma
     Route: 013
  3. METHOTREXATE [Suspect]
     Active Substance: METHOTREXATE
     Indication: Central nervous system lymphoma
     Route: 013
  4. CARBOPLATIN [Suspect]
     Active Substance: CARBOPLATIN
     Indication: Central nervous system lymphoma
     Route: 013

REACTIONS (6)
  - Lymphopenia [Unknown]
  - Neutropenia [Unknown]
  - Granulocytopenia [Unknown]
  - Ischaemia [Unknown]
  - Myelitis [Unknown]
  - Neuropathy peripheral [Unknown]
